FAERS Safety Report 6442892-0 (Version None)
Quarter: 2009Q4

REPORT INFORMATION
  Report Type: 
  Country: None (occurrence: None)
  Receive Date: 20091117
  Receipt Date: 20091109
  Transmission Date: 20100525
  Serious: Yes (Other)
  Sender: FDA-Public Use
  Company Number: FR-ROCHE-668519

PATIENT
  Age: 62 Year
  Sex: Female

DRUGS (2)
  1. PEGASYS [Suspect]
     Indication: HEPATITIS B
     Route: 065
     Dates: start: 20090501
  2. ANTIDEPRESSANT NOS [Concomitant]

REACTIONS (1)
  - VARICOSE ULCERATION [None]
